FAERS Safety Report 8975278 (Version 1)
Quarter: 2012Q4

REPORT INFORMATION
  Report Type: 
  Country: CA (occurrence: CA)
  Receive Date: 20121220
  Receipt Date: 20121220
  Transmission Date: 20130627
  Serious: Yes (Hospitalization, Other)
  Sender: FDA-Public Use
  Company Number: CA-AMGEN-CANSP2012068210

PATIENT
  Age: 56 Year
  Sex: Female
  Weight: 41.82 kg

DRUGS (1)
  1. PROLIA [Suspect]
     Indication: OSTEOPOROSIS
     Dosage: 60 mg, UNK
     Dates: start: 20120411

REACTIONS (5)
  - Small intestinal obstruction [Unknown]
  - Gastrointestinal motility disorder [Unknown]
  - Eating disorder [Unknown]
  - Malaise [Unknown]
  - Weight decreased [Unknown]
